FAERS Safety Report 4369171-X (Version None)
Quarter: 2004Q2

REPORT INFORMATION
  Report Type: 
  Country: None (occurrence: None)
  Receive Date: 20040528
  Receipt Date: 20040519
  Transmission Date: 20050107
  Serious: Yes (Hospitalization)
  Sender: FDA-Public Use
  Company Number: FR-JNJFOC-20040504053

PATIENT
  Age: 91 Year
  Sex: Male

DRUGS (7)
  1. IXPRIM (TRAMADOL HYDROCHLORIDE) [Suspect]
     Indication: DRUG USE FOR UNKNOWN INDICATION
     Dosage: , 3 IN 1 DAY, ORAL
     Route: 048
     Dates: end: 20040412
  2. IXPRIM (TRAMADOL HYDROCHLORIDE) [Suspect]
     Indication: DRUG USE FOR UNKNOWN INDICATION
     Dosage: , 3 IN 1 DAY, ORAL
     Route: 048
     Dates: start: 20040419
  3. DIPROSONE [Suspect]
     Indication: DRUG USE FOR UNKNOWN INDICATION
     Dosage: CUTANEOUS
     Route: 003
  4. ASPIRIN [Suspect]
     Indication: DRUG USE FOR UNKNOWN INDICATION
     Dosage: 75 UG, 1 IN 1 DAY, ORAL
     Route: 048
     Dates: end: 20040407
  5. FUROSEMIDE [Suspect]
     Indication: DRUG USE FOR UNKNOWN INDICATION
     Dosage: 40 MG, 1 IN 1 DAY, ORAL
     Route: 048
  6. SYMBICORT (SYMBICORT ^ASTRAZENECA^) [Suspect]
     Indication: DRUG USE FOR UNKNOWN INDICATION
     Dosage: 600 UG, 1 IN 1 DAY, INTRA-NASAL
     Route: 045
  7. MEDIATENSYL (URAPIDIL) [Suspect]
     Indication: DRUG USE FOR UNKNOWN INDICATION
     Dosage: 120 MG, 1 IN 1 DAY, ORAL
     Route: 048

REACTIONS (10)
  - CONSTIPATION [None]
  - DRUG INTERACTION [None]
  - FALL [None]
  - HAEMATOMA [None]
  - PROTEIN TOTAL DECREASED [None]
  - PROTHROMBIN LEVEL DECREASED [None]
  - PROTHROMBIN TIME PROLONGED [None]
  - RENAL FAILURE ACUTE [None]
  - RESPIRATORY ALKALOSIS [None]
  - RHABDOMYOLYSIS [None]
